FAERS Safety Report 19946038 (Version 1)
Quarter: 2021Q4

REPORT INFORMATION
  Report Type: Spontaneous
  Country: AR (occurrence: AR)
  Receive Date: 20211012
  Receipt Date: 20211012
  Transmission Date: 20220304
  Serious: Yes (Life-Threatening)
  Sender: FDA-Public Use
  Company Number: AR-FRESENIUS KABI-FK202110919

PATIENT
  Age: 68 Year
  Sex: Male

DRUGS (1)
  1. PROTAMINE SULFATE [Suspect]
     Active Substance: PROTAMINE SULFATE
     Indication: Coronary artery bypass
     Route: 065

REACTIONS (1)
  - Anaphylactic reaction [Recovered/Resolved]
